FAERS Safety Report 20515869 (Version 1)
Quarter: 2022Q1

REPORT INFORMATION
  Report Type: Spontaneous
  Country: US (occurrence: US)
  Receive Date: 20220225
  Receipt Date: 20220225
  Transmission Date: 20220424
  Serious: No
  Sender: FDA-Public Use
  Company Number: US-TEVA-2022-US-2006435

PATIENT
  Sex: Female

DRUGS (1)
  1. LORAZEPAM [Suspect]
     Active Substance: LORAZEPAM
     Route: 065
     Dates: start: 20220131

REACTIONS (7)
  - Product quality issue [Unknown]
  - Illness [Unknown]
  - Insomnia [Unknown]
  - Abdominal discomfort [Unknown]
  - Dizziness [Unknown]
  - Nausea [Unknown]
  - Loss of personal independence in daily activities [Unknown]

NARRATIVE: CASE EVENT DATE: 20220131
